FAERS Safety Report 10746042 (Version 1)
Quarter: 2015Q1

REPORT INFORMATION
  Report Type: Spontaneous
  Country: US (occurrence: US)
  Receive Date: 20150128
  Receipt Date: 20150128
  Transmission Date: 20150721
  Serious: Yes (Death, Other)
  Sender: FDA-Public Use
  Company Number: US-BAYER-2015-008453

PATIENT
  Age: 86 Year
  Sex: Male

DRUGS (3)
  1. ROMILAR [Suspect]
     Active Substance: DEXTROMETHORPHAN HYDROBROMIDE
  2. CITALOPRAM [Suspect]
     Active Substance: CITALOPRAM HYDROBROMIDE
  3. QUETIAPINE [Suspect]
     Active Substance: QUETIAPINE

REACTIONS (7)
  - Delirium [None]
  - Tremor [None]
  - Toxicity to various agents [Fatal]
  - Pneumonia aspiration [None]
  - Dystonia [None]
  - Tachycardia [None]
  - Hyperreflexia [None]
